FAERS Safety Report 6830209-9 (Version None)
Quarter: 2010Q3

REPORT INFORMATION
  Report Type: 
  Country: None (occurrence: None)
  Receive Date: 20100711
  Receipt Date: 20100616
  Transmission Date: 20110219
  Serious: No
  Sender: FDA-Public Use
  Company Number: US-ALLERGAN-1007998US

PATIENT
  Age: 57 Year
  Sex: Female
  Weight: 145 kg

DRUGS (2)
  1. LATISSE [Suspect]
     Indication: PRODUCT USED FOR UNKNOWN INDICATION
     Dosage: 1 GTT, QHS
     Route: 061
     Dates: start: 20091201
  2. CLEAR EYES                         /00419602/ [Concomitant]
     Dosage: UNK

REACTIONS (3)
  - FOREIGN BODY SENSATION IN EYES [None]
  - SCLERAL PIGMENTATION [None]
  - SKIN HYPERPIGMENTATION [None]
